FAERS Safety Report 4961425-9 (Version None)
Quarter: 2006Q1

REPORT INFORMATION
  Report Type: 
  Country: None (occurrence: None)
  Receive Date: 20060329
  Receipt Date: 20060316
  Transmission Date: 20060701
  Serious: Yes (Other)
  Sender: FDA-Public Use
  Company Number: GXKR2006IT01601

PATIENT
  Age: 62 Year
  Sex: Male

DRUGS (2)
  1. RIBAVIRIN (NGX) (RIBAVIRIN) UNKNOWN [Suspect]
     Indication: HEPATITIS C
     Dosage: 1000 MG, QD; ORAL
     Route: 048
  2. PEGINTERFERON ALFA-1A (PEGINTERFERON ALFA-2A) [Suspect]
     Indication: HEPATITIS C
     Dosage: 180 UG, QW; SUBCUTANEOUS
     Route: 058

REACTIONS (4)
  - IMMUNOSUPPRESSION [None]
  - LUNG INFILTRATION [None]
  - LYMPHOPENIA [None]
  - TUBERCULOSIS [None]
